FAERS Safety Report 8825794 (Version 4)
Quarter: 2012Q4

REPORT INFORMATION
  Report Type: 
  Country: US (occurrence: US)
  Receive Date: 20121004
  Receipt Date: 20121217
  Transmission Date: 20130627
  Serious: Yes (Hospitalization, Disabling, Other)
  Sender: FDA-Public Use
  Company Number: US-009507513-1205USA00975

PATIENT

DRUGS (4)
  1. FOSAMAX [Suspect]
     Indication: OSTEOPOROSIS
     Dosage: 10 mg, UNK
     Route: 048
     Dates: start: 1995, end: 2010
  2. FOSAMAX [Suspect]
     Dosage: 70 mg, UNK
     Route: 048
     Dates: start: 20000530, end: 20100105
  3. FOSAMAX [Suspect]
     Route: 048
     Dates: start: 1995, end: 2010
  4. FOSAMAX PLUS D [Suspect]
     Indication: OSTEOPOROSIS
     Dosage: 70 UNK, UNK
     Route: 048
     Dates: start: 1995, end: 2010

REACTIONS (28)
  - Femur fracture [Not Recovered/Not Resolved]
  - Intramedullary rod insertion [Unknown]
  - Fracture nonunion [Recovered/Resolved]
  - Medical device removal [Unknown]
  - Bone graft [Unknown]
  - Medical device removal [Unknown]
  - Device failure [Unknown]
  - Debridement [Unknown]
  - Medical device removal [Unknown]
  - Internal fixation of fracture [Unknown]
  - Internal fixation of fracture [Unknown]
  - Bone graft [Unknown]
  - Impaired healing [Not Recovered/Not Resolved]
  - Low turnover osteopathy [Not Recovered/Not Resolved]
  - Femur fracture [Unknown]
  - Parathyroidectomy [Unknown]
  - Limb asymmetry [Unknown]
  - Hypertension [Unknown]
  - Depression [Unknown]
  - Infection [Unknown]
  - Anaemia postoperative [Unknown]
  - Osteopenia [Unknown]
  - Osteoarthritis [Unknown]
  - Fracture delayed union [Unknown]
  - Anxiety [Unknown]
  - Hyperparathyroidism [Unknown]
  - Bone metabolism disorder [Unknown]
  - Pyrexia [Recovered/Resolved]
